FAERS Safety Report 18788543 (Version 1)
Quarter: 2021Q1

REPORT INFORMATION
  Report Type: Other
  Country: US (occurrence: US)
  Receive Date: 20210125
  Receipt Date: 20210125
  Transmission Date: 20210419
  Serious: No
  Sender: FDA-Public Use
  Company Number: US-ROCHE-2694305

PATIENT
  Age: 43 Year
  Sex: Female

DRUGS (6)
  1. DOXYCYCLINE. [Concomitant]
     Active Substance: DOXYCYCLINE
     Indication: CHLAMYDIAL INFECTION
  2. METHYLPREDNISOLONE. [Concomitant]
     Active Substance: METHYLPREDNISOLONE
     Indication: COGAN^S SYNDROME
     Route: 042
  3. METRONIDAZOLE. [Concomitant]
     Active Substance: METRONIDAZOLE
  4. CIPROFLOXACIN. [Concomitant]
     Active Substance: CIPROFLOXACIN
  5. RITUXIMAB. [Suspect]
     Active Substance: RITUXIMAB
     Indication: COGAN^S SYNDROME
     Dosage: 4 DOSES
     Route: 065
     Dates: start: 201508
  6. PREDNISONE. [Concomitant]
     Active Substance: PREDNISONE
     Indication: COGAN^S SYNDROME

REACTIONS (2)
  - No adverse event [Unknown]
  - Drug ineffective [Unknown]
